FAERS Safety Report 9531260 (Version 1)
Quarter: 2013Q3

REPORT INFORMATION
  Report Type: Spontaneous
  Country: US (occurrence: None)
  Receive Date: 20130916
  Receipt Date: 20130916
  Transmission Date: 20140515
  Serious: Yes (Disabling)
  Sender: FDA-Public Use
  Company Number: None

PATIENT
  Age: 58 Year
  Sex: Female
  Weight: 63.5 kg

DRUGS (2)
  1. HALOPERIDOL [Suspect]
     Indication: BIPOLAR DISORDER
     Dates: start: 20060912, end: 20130913
  2. HALOPERIDOL [Suspect]
     Indication: DISABILITY
     Dates: start: 20060912, end: 20130913

REACTIONS (1)
  - Nervous system disorder [None]
